FAERS Safety Report 12891333 (Version 1)
Quarter: 2016Q4

REPORT INFORMATION
  Report Type: Spontaneous
  Country: AU (occurrence: AU)
  Receive Date: 20161028
  Receipt Date: 20161028
  Transmission Date: 20170207
  Serious: Yes (Other)
  Sender: FDA-Public Use
  Company Number: AU-JNJFOC-20161014683

PATIENT

DRUGS (2)
  1. CODRAL ORIGINAL DAY TABLETS (ACETAMINOPHEN\CODEINE PHOSPHATE\PSEUDOEPHEDRINE HYDROCHLORIDE) [Suspect]
     Active Substance: ACETAMINOPHEN\CODEINE PHOSPHATE\PSEUDOEPHEDRINE HYDROCHLORIDE
     Indication: PRODUCT USED FOR UNKNOWN INDICATION
     Dosage: DOSE REPORTED AS 2 DOSES.
     Route: 065
  2. CODRAL ORIGINAL NIGHT TABLETS (ACETAMINOPHEN\CHLORPHENIRAMINE MALEATE\PHENYLEPHRINE HYDROCHLORIDE) [Suspect]
     Active Substance: ACETAMINOPHEN\CHLORPHENIRAMINE MALEATE\PHENYLEPHRINE HYDROCHLORIDE
     Indication: PRODUCT USED FOR UNKNOWN INDICATION
     Dosage: DOSE REPORTED AS 2 DOSES.
     Route: 065

REACTIONS (1)
  - Urinary retention [Unknown]
